FAERS Safety Report 12920773 (Version 1)
Quarter: 2016Q4

REPORT INFORMATION
  Report Type: Spontaneous
  Country: US (occurrence: US)
  Receive Date: 20161108
  Receipt Date: 20161108
  Transmission Date: 20170207
  Serious: No
  Sender: FDA-Public Use
  Company Number: US-APOPHARMA USA, INC.-2016AP014374

PATIENT
  Age: 12 Year
  Sex: Female

DRUGS (3)
  1. ALKERAN [Suspect]
     Active Substance: MELPHALAN
     Indication: TRANSPLANT
     Dosage: 140 MG/M2, UNKNOWN
     Route: 065
  2. CLOFARABINE [Concomitant]
     Active Substance: CLOFARABINE
     Indication: CORD BLOOD TRANSPLANT THERAPY
     Dosage: 200 MG/M2, UNK
     Route: 065
  3. ALEMTUZUMAB [Concomitant]
     Active Substance: ALEMTUZUMAB
     Indication: CORD BLOOD TRANSPLANT THERAPY
     Dosage: 1.5 MG/KG, UNKNOWN
     Route: 065

REACTIONS (2)
  - Ovarian failure [Unknown]
  - Amenorrhoea [Recovering/Resolving]
